FAERS Safety Report 17150832 (Version 1)
Quarter: 2019Q4

REPORT INFORMATION
  Report Type: Spontaneous
  Country: US (occurrence: US)
  Receive Date: 20191212
  Receipt Date: 20191212
  Transmission Date: 20200122
  Serious: No
  Sender: FDA-Public Use
  Company Number: None

PATIENT
  Age: 32 Year
  Sex: Female
  Weight: 126 kg

DRUGS (4)
  1. NO DRIP NASAL MIST NASAL DECONGESTANT SEVERE CONGESTION [Suspect]
     Active Substance: OXYMETAZOLINE HYDROCHLORIDE
     Indication: PULMONARY CONGESTION
     Dosage: ?          QUANTITY:2 SPRAY(S);OTHER ROUTE:NASAL SPRAY?
     Dates: start: 20191212, end: 20191212
  2. METHADONE [Concomitant]
     Active Substance: METHADONE HYDROCHLORIDE
  3. IBUPROFEN. [Concomitant]
     Active Substance: IBUPROFEN
  4. BENADRYL [Concomitant]
     Active Substance: DIPHENHYDRAMINE HYDROCHLORIDE

REACTIONS (4)
  - Product quality issue [None]
  - Parosmia [None]
  - Nasal discomfort [None]
  - Sinus pain [None]

NARRATIVE: CASE EVENT DATE: 20191212
